FAERS Safety Report 8284502-6 (Version None)
Quarter: 2012Q2

REPORT INFORMATION
  Report Type: 
  Country: None (occurrence: None)
  Receive Date: 20120413
  Receipt Date: 20111010
  Transmission Date: 20120825
  Serious: No
  Sender: FDA-Public Use
  Company Number: US-ASTRAZENECA-2011SE60709

PATIENT
  Age: 64 Year
  Sex: Female
  Weight: 86.2 kg

DRUGS (5)
  1. CILEXA [Concomitant]
     Indication: DEPRESSION
  2. NEXIUM [Suspect]
     Indication: GASTRIC ULCER
     Route: 048
     Dates: start: 20111001
  3. VITAMIN D [Concomitant]
     Indication: GLOBULINS DECREASED
  4. PRAVACHOL [Concomitant]
     Indication: HYPERTENSION
  5. LISINOPRIL AND HYDROCHLOROTHIAZIDE [Concomitant]
     Indication: BLOOD PRESSURE ABNORMAL

REACTIONS (1)
  - JOINT SWELLING [None]
